FAERS Safety Report 15920650 (Version 1)
Quarter: 2019Q1

REPORT INFORMATION
  Report Type: Spontaneous
  Country: US (occurrence: US)
  Receive Date: 20190205
  Receipt Date: 20190205
  Transmission Date: 20190417
  Serious: Yes (Other)
  Sender: FDA-Public Use
  Company Number: US-009507513-1902USA001467

PATIENT
  Sex: Female
  Weight: 55.78 kg

DRUGS (1)
  1. NEXPLANON [Suspect]
     Active Substance: ETONOGESTREL
     Indication: CONTRACEPTION
     Dosage: 1 IMPLANT EVERY THREE YEARS IN LEFT ARM
     Route: 059
     Dates: start: 20181130

REACTIONS (3)
  - Pregnancy with implant contraceptive [Unknown]
  - Malaise [Unknown]
  - Unintended pregnancy [Unknown]
